FAERS Safety Report 14151505 (Version 1)
Quarter: 2017Q4

REPORT INFORMATION
  Report Type: Spontaneous
  Country: US (occurrence: US)
  Receive Date: 20171102
  Receipt Date: 20171102
  Transmission Date: 20180321
  Serious: Yes (Other)
  Sender: FDA-Public Use
  Company Number: US-PFIZER INC-2017471803

PATIENT
  Sex: Male

DRUGS (1)
  1. LYRICA [Suspect]
     Active Substance: PREGABALIN
     Dosage: 1125 MG, DAILY

REACTIONS (4)
  - Suicidal ideation [Unknown]
  - Prescribed overdose [Unknown]
  - Depression [Unknown]
  - Cognitive disorder [Unknown]
